FAERS Safety Report 25587782 (Version 4)
Quarter: 2025Q4

REPORT INFORMATION
  Report Type: Report from Study
  Country: US (occurrence: US)
  Receive Date: 20250721
  Receipt Date: 20251121
  Transmission Date: 20260118
  Serious: Yes (Other)
  Sender: MALLINCKRODT
  Company Number: US-MALLINCKRODT-MNK202504366

PATIENT
  Age: 78 Year
  Sex: Female

DRUGS (1)
  1. CORTICOTROPIN [Suspect]
     Active Substance: CORTICOTROPIN
     Indication: Optic neuritis
     Route: 058
     Dates: start: 202504

REACTIONS (6)
  - Diabetes mellitus [Unknown]
  - Increased tendency to bruise [Unknown]
  - Dyspnoea [Unknown]
  - Dizziness [Unknown]
  - Hair texture abnormal [Unknown]
  - Skin atrophy [Unknown]

NARRATIVE: CASE EVENT DATE: 20250101
